FAERS Safety Report 7632409-7 (Version None)
Quarter: 2011Q3

REPORT INFORMATION
  Report Type: 
  Country: None (occurrence: None)
  Receive Date: 20110725
  Receipt Date: 20100826
  Transmission Date: 20111222
  Serious: No
  Sender: FDA-Public Use
  Company Number: US-BRISTOL-MYERS SQUIBB COMPANY-15257553

PATIENT
  Age: 73 Year
  Sex: Female

DRUGS (20)
  1. VITAMIN B COMPLEX CAP [Concomitant]
     Dosage: B 100 COMPLEX
  2. NEXIUM [Concomitant]
  3. FISH OIL [Concomitant]
  4. COUMADIN [Suspect]
     Dosage: FOR 2 WEEKS
  5. ASPIRIN [Concomitant]
  6. DEXAMETHASONE [Concomitant]
     Dosage: DEXAMETHASONE GEL;1DF=0.5 UNITS NOT SPECIFIED PRN
  7. DETROL LA [Concomitant]
  8. NASACORT [Concomitant]
  9. LIPITOR [Concomitant]
     Dosage: 1DF=40 UNITS NOT SPECIFIED AT BEDTIME
  10. VITAMIN D [Concomitant]
  11. ISOSORBIDE MONONITRATE [Concomitant]
  12. NITROGLYCERIN [Concomitant]
  13. PREMARIN [Concomitant]
  14. COUMADIN [Suspect]
     Dates: start: 20000701
  15. CORZIDE [Concomitant]
  16. POTASSIUM [Concomitant]
  17. SEROQUEL [Concomitant]
  18. ALPRAZOLAM [Concomitant]
     Dosage: PRN
  19. HYOSCYAMINE [Concomitant]
     Dosage: 1DF=0.125 UNITS NOT SPECIFIED
  20. BENEFIBER [Concomitant]

REACTIONS (1)
  - PROTHROMBIN LEVEL DECREASED [None]
